FAERS Safety Report 10077507 (Version 1)
Quarter: 2014Q2

REPORT INFORMATION
  Report Type: Report from Study
  Country: US (occurrence: US)
  Receive Date: 20140414
  Receipt Date: 20140414
  Transmission Date: 20141212
  Serious: Yes (Hospitalization)
  Sender: FDA-Public Use
  Company Number: US-ABBVIE-14P-163-1221538-00

PATIENT
  Age: 48 Year
  Sex: Female

DRUGS (9)
  1. HUMIRA [Suspect]
     Indication: PSORIASIS
     Dates: start: 20140327
  2. HUMALOG [Concomitant]
     Indication: DIABETES MELLITUS
  3. ALLOPURINOL [Concomitant]
     Indication: GOUT
  4. POTASSIUM [Concomitant]
     Indication: PRODUCT USED FOR UNKNOWN INDICATION
  5. MAGNESIUM [Concomitant]
     Indication: PRODUCT USED FOR UNKNOWN INDICATION
  6. FOLIC ACID [Concomitant]
     Indication: PRODUCT USED FOR UNKNOWN INDICATION
  7. MULTI VITAMIN [Concomitant]
     Indication: PRODUCT USED FOR UNKNOWN INDICATION
  8. HCTZ [Concomitant]
     Indication: PRODUCT USED FOR UNKNOWN INDICATION
  9. PRILOSEC [Concomitant]
     Indication: PRODUCT USED FOR UNKNOWN INDICATION

REACTIONS (1)
  - Hepatic cirrhosis [Not Recovered/Not Resolved]
